FAERS Safety Report 8398638-2 (Version None)
Quarter: 2012Q2

REPORT INFORMATION
  Report Type: 
  Country: None (occurrence: None)
  Receive Date: 20120524
  Receipt Date: 20120510
  Transmission Date: 20120825
  Serious: Yes (Life-Threatening, Hospitalization, Disabling)
  Sender: FDA-Public Use
  Company Number: B0720632A

PATIENT
  Sex: Female

DRUGS (4)
  1. LEVOTHYROXINE SODIUM [Concomitant]
  2. GRAPEFRUIT JUICE (FORMULATION UNKNOWN) (GRAPFRUIT JUICE) [Suspect]
     Dosage: SEE DOSAGE TEXT / ORAL
     Route: 048
  3. AMERGE [Suspect]
     Indication: MIGRAINE
     Dosage: 1 TABLET / SIX TIMES PER DAY / ORAL
     Route: 048
     Dates: start: 20110421, end: 20110421
  4. IBUPROFEN [Concomitant]

REACTIONS (22)
  - NEUTROPHIL COUNT INCREASED [None]
  - WHITE BLOOD CELL COUNT INCREASED [None]
  - ASCITES [None]
  - HEPATIC FAILURE [None]
  - LACTIC ACIDOSIS [None]
  - ABDOMINAL ADHESIONS [None]
  - CANDIDIASIS [None]
  - SEPTIC SHOCK [None]
  - ANXIETY [None]
  - DISSEMINATED INTRAVASCULAR COAGULATION [None]
  - GASTROINTESTINAL NECROSIS [None]
  - VOLVULUS [None]
  - TOXICITY TO VARIOUS AGENTS [None]
  - MULTI-ORGAN FAILURE [None]
  - DIALYSIS [None]
  - OVERDOSE [None]
  - C-REACTIVE PROTEIN INCREASED [None]
  - RENAL FAILURE [None]
  - INTESTINAL ISCHAEMIA [None]
  - DRUG ADMINISTRATION ERROR [None]
  - INTESTINAL OBSTRUCTION [None]
  - FAECAL VOMITING [None]
